FAERS Safety Report 22207733 (Version 1)
Quarter: 2023Q2

REPORT INFORMATION
  Report Type: Spontaneous
  Country: GB (occurrence: GB)
  Receive Date: 20230413
  Receipt Date: 20230413
  Transmission Date: 20230721
  Serious: Yes (Other)
  Sender: FDA-Public Use
  Company Number: GB-MYLANLABS-2023M1039029

PATIENT
  Age: 62 Year
  Sex: Male

DRUGS (2)
  1. HYDROCORTISONE [Suspect]
     Active Substance: HYDROCORTISONE
     Indication: Addison^s disease
     Dosage: RECEIVED 20 MG/24 HOURS (10MG IN MORNING, 5MG AT LUNCHTIME AND 5MG IN AFTERNOON)
     Route: 065
  2. FLUDROCORTISONE [Concomitant]
     Active Substance: FLUDROCORTISONE
     Indication: Addison^s disease
     Dosage: 100 MICROGRAM, QD
     Route: 065

REACTIONS (3)
  - Rebound effect [Unknown]
  - Arthralgia [Unknown]
  - Dyspnoea [Unknown]
